FAERS Safety Report 21275827 (Version 1)
Quarter: 2022Q3

REPORT INFORMATION
  Report Type: Report from Study
  Country: GB (occurrence: GB)
  Receive Date: 20220831
  Receipt Date: 20220831
  Transmission Date: 20221026
  Serious: Yes (Other)
  Sender: FDA-Public Use
  Company Number: GB-GILEAD-2022-0595830

PATIENT
  Age: 46 Year
  Sex: Female

DRUGS (4)
  1. EMTRICITABINE\TENOFOVIR [Suspect]
     Active Substance: EMTRICITABINE\TENOFOVIR
     Indication: HIV infection
     Dosage: 225 MG, QD
     Route: 048
     Dates: start: 20210416
  2. COBICISTAT;DARUNAVIR ETHANOLATE;EMTRICITABINE;TENOFOVIR ALAFENAMIDE FU [Concomitant]
  3. DARUNAVIR [Concomitant]
     Active Substance: DARUNAVIR
  4. RITONAVIR [Concomitant]
     Active Substance: RITONAVIR

REACTIONS (1)
  - Abortion spontaneous [Recovered/Resolved]

NARRATIVE: CASE EVENT DATE: 20210602
